FAERS Safety Report 5499544-3 (Version None)
Quarter: 2007Q4

REPORT INFORMATION
  Report Type: 
  Country: None (occurrence: None)
  Receive Date: 20071026
  Receipt Date: 20071015
  Transmission Date: 20080405
  Serious: Yes (Other)
  Sender: FDA-Public Use
  Company Number: US-SHR-US-2007-028425

PATIENT
  Age: 61 Year
  Sex: Female
  Weight: 73 kg

DRUGS (9)
  1. BETASERON [Suspect]
     Indication: SECONDARY PROGRESSIVE MULTIPLE SCLEROSIS
     Route: 058
     Dates: start: 19940727, end: 20070501
  2. BETASERON [Suspect]
     Dosage: 8 MIU, EVERY 2D
     Route: 058
     Dates: start: 20070702, end: 20070101
  3. BETASERON [Suspect]
     Dosage: 8 MIU, EVERY 2D
     Route: 058
     Dates: start: 20070101
  4. AMANTADINE HCL [Concomitant]
  5. BACLOFEN [Concomitant]
  6. ZOLOFT [Concomitant]
  7. ZINC SULFATE [Concomitant]
  8. PREVACID [Concomitant]
  9. CARBAMAZEPINE [Concomitant]

REACTIONS (6)
  - ABDOMINAL NEOPLASM [None]
  - HIATUS HERNIA [None]
  - LYMPHADENOPATHY [None]
  - LYMPHATIC SYSTEM NEOPLASM [None]
  - NEOPLASM [None]
  - NEPHROLITHIASIS [None]
